FAERS Safety Report 9360934 (Version 1)
Quarter: 2013Q2

REPORT INFORMATION
  Report Type: Spontaneous
  Country: BR (occurrence: BR)
  Receive Date: 20130621
  Receipt Date: 20130621
  Transmission Date: 20140414
  Serious: Yes (Hospitalization)
  Sender: FDA-Public Use
  Company Number: BR-ASTRAZENECA-2013SE46724

PATIENT
  Age: 70 Year
  Sex: Female
  Weight: 72 kg

DRUGS (4)
  1. ATACAND [Suspect]
     Indication: HYPERTENSION
     Route: 048
     Dates: start: 2011
  2. SELOZOK [Suspect]
     Indication: INFARCTION
     Route: 048
     Dates: start: 2011
  3. CRESTOR [Suspect]
     Indication: BLOOD CHOLESTEROL INCREASED
     Route: 048
  4. INSULIN [Concomitant]
     Indication: DIABETES MELLITUS
     Dates: start: 1993

REACTIONS (3)
  - Myocardial infarction [Recovered/Resolved]
  - Blood pressure increased [Not Recovered/Not Resolved]
  - Drug ineffective [Not Recovered/Not Resolved]
